FAERS Safety Report 21827644 (Version 1)
Quarter: 2023Q1

REPORT INFORMATION
  Report Type: Spontaneous
  Country: US (occurrence: US)
  Receive Date: 20230106
  Receipt Date: 20230106
  Transmission Date: 20230418
  Serious: No
  Sender: FDA-Public Use
  Company Number: US-SANOFI-01430256

PATIENT
  Age: 74 Year
  Sex: Male

DRUGS (2)
  1. LANTUS SOLOSTAR [Suspect]
     Active Substance: INSULIN GLARGINE
     Indication: Type 2 diabetes mellitus
     Dosage: 64 UNITS HS
  2. NOVOLOG [Concomitant]
     Active Substance: INSULIN ASPART
     Dosage: 3X^S DAILY

REACTIONS (1)
  - Product use issue [Unknown]
